FAERS Safety Report 17997826 (Version 1)
Quarter: 2020Q3

REPORT INFORMATION
  Report Type: Spontaneous
  Country: US (occurrence: US)
  Receive Date: 20200709
  Receipt Date: 20200709
  Transmission Date: 20201103
  Serious: No
  Sender: FDA-Public Use
  Company Number: US-ASTRAZENECA-2020SE82110

PATIENT
  Sex: Female
  Weight: 53.5 kg

DRUGS (2)
  1. LOSARTAN. [Concomitant]
     Active Substance: LOSARTAN
  2. LYNPARZA [Suspect]
     Active Substance: OLAPARIB
     Indication: OVARIAN CANCER
     Route: 048

REACTIONS (6)
  - Illness [Unknown]
  - Vomiting [Not Recovered/Not Resolved]
  - Nausea [Unknown]
  - Abdominal discomfort [Unknown]
  - Dyspepsia [Unknown]
  - Constipation [Unknown]
